FAERS Safety Report 10388927 (Version 1)
Quarter: 2014Q1

REPORT INFORMATION
  Report Type: Spontaneous
  Country: US (occurrence: None)
  Receive Date: 20140306
  Receipt Date: 20140306
  Transmission Date: 20141002
  Serious: Yes (Hospitalization)
  Sender: FDA-Public Use
  Company Number: 163-21880-13114943

PATIENT
  Age: 74 Year
  Sex: Male

DRUGS (10)
  1. REVLIMID (LENALIDOMIDE) (CAPSULES) [Suspect]
     Indication: PLASMA CELL MYELOMA
     Dosage: NOT PROVIDED, PO
     Route: 048
     Dates: start: 20131029
  2. SAR650984 (OTHER THERAPEUTIC PRODUCTS) (INJECTION FOR INFUSION) [Suspect]
     Indication: PLASMA CELL MYELOMA
     Dosage: ON DAYS 1 AND 15, IV
     Route: 042
     Dates: start: 20131029
  3. DEXAMETHASONE (DEXAMETHASONE) (CAPSULES) [Suspect]
     Indication: PLASMA CELL MYELOMA
     Dosage: DAY 1, 8, 15, AND 22, PO
     Route: 048
     Dates: start: 20131029
  4. ASPIRIN (ACETYLSALICYLIC ACID) [Concomitant]
  5. ACETAMINOPHEN (PARACETAMOL) [Concomitant]
  6. DIPHENHYDRAMINE [Concomitant]
  7. FAMOTIDINE [Concomitant]
  8. PLASMA-LYTE [Concomitant]
  9. PROPOFOL [Concomitant]
  10. LIDOCAINE [Concomitant]

REACTIONS (1)
  - Febrile neutropenia [None]
